FAERS Safety Report 7875392-1 (Version None)
Quarter: 2011Q4

REPORT INFORMATION
  Report Type: 
  Country: None (occurrence: None)
  Receive Date: 20111031
  Receipt Date: 20111020
  Transmission Date: 20120403
  Serious: Yes (Other)
  Sender: FDA-Public Use
  Company Number: CH-GLAXOSMITHKLINE-B0758644A

PATIENT
  Sex: Male

DRUGS (4)
  1. TROBALT [Suspect]
     Indication: EPILEPSY
     Route: 048
     Dates: start: 20110701
  2. LYRICA [Concomitant]
  3. LAMOTRIGINE [Concomitant]
     Indication: EPILEPSY
     Dosage: 400MG PER DAY
     Route: 048
  4. TOPIRAMATE [Concomitant]
     Indication: EPILEPSY
     Dosage: 250MG PER DAY
     Route: 048

REACTIONS (4)
  - APATHY [None]
  - POISONING [None]
  - OVERDOSE [None]
  - MYOCLONUS [None]
